FAERS Safety Report 16252609 (Version 1)
Quarter: 2019Q2

REPORT INFORMATION
  Report Type: Spontaneous
  Country: US (occurrence: US)
  Receive Date: 20190429
  Receipt Date: 20190429
  Transmission Date: 20190711
  Serious: Yes (Other)
  Sender: FDA-Public Use
  Company Number: US-PFIZER INC-2019178976

PATIENT
  Age: 77 Year
  Sex: Female
  Weight: 52 kg

DRUGS (1)
  1. EPINEPHRINE. [Suspect]
     Active Substance: EPINEPHRINE
     Dosage: UNK
     Route: 065

REACTIONS (3)
  - Heart rate increased [Unknown]
  - Blood pressure increased [Unknown]
  - Drug hypersensitivity [Unknown]
